FAERS Safety Report 9606023 (Version 2)
Quarter: 2013Q4

REPORT INFORMATION
  Report Type: Spontaneous
  Country: US (occurrence: US)
  Receive Date: 20131008
  Receipt Date: 20131008
  Transmission Date: 20140711
  Serious: No
  Sender: FDA-Public Use
  Company Number: US-AMGEN-USASP2013038493

PATIENT
  Age: 81 Year
  Sex: Female
  Weight: 82.81 kg

DRUGS (7)
  1. PROLIA [Suspect]
     Indication: PRODUCT USED FOR UNKNOWN INDICATION
     Dosage: UNK
     Route: 058
     Dates: start: 20130521
  2. VITAMIN D                          /00107901/ [Concomitant]
     Dosage: 2000 IU, QD
     Route: 048
  3. ALLOPURINOL [Concomitant]
     Dosage: 300 UNK, QD
     Route: 058
  4. AMLODIPIN                          /00972401/ [Concomitant]
     Dosage: 10 MG, QD
     Route: 048
  5. NADOLOL [Concomitant]
     Dosage: 20 MG, QD
     Route: 048
  6. PAXIL                              /00500401/ [Concomitant]
     Dosage: 20 MG, QD
     Route: 048
  7. DIOVAN HCT [Concomitant]
     Dosage: 320/25, QD
     Route: 048

REACTIONS (3)
  - Rash pruritic [Recovered/Resolved]
  - Rash macular [Recovered/Resolved]
  - Chills [Not Recovered/Not Resolved]
